FAERS Safety Report 19969058 (Version 1)
Quarter: 2021Q4

REPORT INFORMATION
  Report Type: Spontaneous
  Country: AR (occurrence: AR)
  Receive Date: 20211019
  Receipt Date: 20211019
  Transmission Date: 20220303
  Serious: Yes (Other)
  Sender: FDA-Public Use
  Company Number: AR-PFIZER INC-2021480868

PATIENT
  Age: 77 Year
  Sex: Female

DRUGS (4)
  1. IBRANCE [Suspect]
     Active Substance: PALBOCICLIB
     Indication: Breast cancer metastatic
     Dosage: UNK
     Dates: start: 20190312, end: 20210329
  2. IBRANCE [Suspect]
     Active Substance: PALBOCICLIB
     Dosage: 100 MG, DAILY FOR 14 DAYS, (UNSPECIFIED REST)
  3. FULVESTRANT [Concomitant]
     Active Substance: FULVESTRANT
  4. ASTRAZENECA COVID-19 VACCINE [Concomitant]
     Active Substance: AZD-1222
     Indication: COVID-19 immunisation
     Dosage: FIRST DOSE, SINGLE
     Dates: start: 20210427, end: 20210427

REACTIONS (5)
  - Decreased immune responsiveness [Unknown]
  - Inflammation [Unknown]
  - Laboratory test abnormal [Unknown]
  - Food intolerance [Unknown]
  - Fatigue [Unknown]
